FAERS Safety Report 4760809-1 (Version None)
Quarter: 2005Q3

REPORT INFORMATION
  Report Type: 
  Country: None (occurrence: None)
  Receive Date: 20050826
  Receipt Date: 20050301
  Transmission Date: 20060218
  Serious: Yes (Death, Other)
  Sender: FDA-Public Use
  Company Number: USA-2004-0016802

PATIENT
  Age: 18 Year
  Sex: Male
  Weight: 79.8 kg

DRUGS (3)
  1. OXYCONTIN [Suspect]
     Dosage: 80 MG, SEE TEXT, NASAL
     Route: 045
  2. ETHANOL (ETHANOL) [Suspect]
     Dosage: ORAL
     Route: 048
  3. CAFFEINE (CAFFEINE) [Suspect]

REACTIONS (3)
  - MULTIPLE DRUG OVERDOSE [None]
  - MULTIPLE DRUG OVERDOSE ACCIDENTAL [None]
  - POLYSUBSTANCE ABUSE [None]
